FAERS Safety Report 9736428 (Version 1)
Quarter: 2013Q4

REPORT INFORMATION
  Report Type: Spontaneous
  Country: US (occurrence: US)
  Receive Date: 20131206
  Receipt Date: 20131206
  Transmission Date: 20140711
  Serious: No
  Sender: FDA-Public Use
  Company Number: US-009507513-1310USA009810

PATIENT
  Age: 24 Year
  Sex: Female

DRUGS (1)
  1. NEXPLANON [Suspect]
     Indication: CONTRACEPTION
     Dosage: 68 MG, UNK
     Route: 059
     Dates: start: 20131002

REACTIONS (5)
  - Dizziness [Unknown]
  - Blood pressure increased [Unknown]
  - Urinary incontinence [Unknown]
  - Rash [Not Recovered/Not Resolved]
  - Palpitations [Unknown]
